FAERS Safety Report 6488797-0 (Version None)
Quarter: 2009Q4

REPORT INFORMATION
  Report Type: 
  Country: None (occurrence: None)
  Receive Date: 20091210
  Receipt Date: 20091203
  Transmission Date: 20100525
  Serious: Yes (Hospitalization)
  Sender: FDA-Public Use
  Company Number: IT-PFIZER INC-2009305958

PATIENT
  Age: 76 Year
  Sex: Female

DRUGS (11)
  1. TOTALIP [Suspect]
     Indication: MYOCARDIAL ISCHAEMIA
     Dosage: 20 MG, X/DAY
     Route: 048
     Dates: start: 20080101, end: 20091102
  2. BISOPROLOL [Concomitant]
     Dosage: UNK
     Route: 048
  3. NORVASC [Concomitant]
     Dosage: UNK
     Route: 048
  4. TORASEMIDE SODIUM [Concomitant]
     Dosage: UNK
     Route: 048
  5. ASPIRIN [Concomitant]
     Dosage: UNK
     Route: 048
  6. ALLOPURINOL [Concomitant]
     Dosage: UNK
     Route: 048
  7. PROTAPHANE HM [Concomitant]
     Dosage: 10 INTERNATIONAL UNITS (LOWER THAN 100)
     Route: 058
  8. OMEGA-3 TRIGLYCERIDES [Concomitant]
     Dosage: UNK
     Route: 048
  9. COTAREG ^NOVARTIS^ [Concomitant]
     Dosage: UNK
     Route: 048
  10. ACTRAPID [Concomitant]
     Dosage: 6 INTERNATIONAL UNITS (LOWER THAN 100)
     Route: 058
  11. FERROUS SULFATE [Concomitant]
     Dosage: UNK
     Route: 048

REACTIONS (2)
  - HAEMATOMA [None]
  - THROMBOCYTOPENIA [None]
